FAERS Safety Report 6775079-2 (Version None)
Quarter: 2010Q2

REPORT INFORMATION
  Report Type: 
  Country: None (occurrence: None)
  Receive Date: 20100617
  Receipt Date: 20100609
  Transmission Date: 20101027
  Serious: Yes (Life-Threatening, Hospitalization, Disabling)
  Sender: FDA-Public Use
  Company Number: B0659732A

PATIENT
  Sex: Male

DRUGS (4)
  1. ARIXTRA [Suspect]
     Indication: PULMONARY EMBOLISM
     Dosage: 1.5MG PER DAY
     Route: 058
     Dates: start: 20100402, end: 20100503
  2. AVLOCARDYL [Concomitant]
     Route: 065
  3. CANDESARTAN CILEXETIL/HYDROCHLOROTHIAZIDE (ATACAND HCT) [Concomitant]
     Route: 065
  4. INIPOMP [Concomitant]
     Route: 065

REACTIONS (6)
  - CEREBRAL HAEMORRHAGE [None]
  - FACIAL PALSY [None]
  - HEMIPLEGIA [None]
  - INCORRECT DOSE ADMINISTERED [None]
  - NERVOUS SYSTEM DISORDER [None]
  - RESPIRATORY FAILURE [None]
